FAERS Safety Report 9361151 (Version 1)
Quarter: 2013Q2

REPORT INFORMATION
  Report Type: Spontaneous
  Country: US (occurrence: US)
  Receive Date: 20130621
  Receipt Date: 20130621
  Transmission Date: 20140414
  Serious: No
  Sender: FDA-Public Use
  Company Number: US-BAYER-2013-076270

PATIENT
  Age: 46 Year
  Sex: Male
  Weight: 95.24 kg

DRUGS (6)
  1. BETASERON [Suspect]
     Indication: MULTIPLE SCLEROSIS
     Dosage: 0.25 MG, QOD
     Route: 058
     Dates: start: 200701, end: 20130517
  2. ZETIA [Concomitant]
     Dosage: 10 MG, UNK
  3. VITAMIN D [Concomitant]
     Dosage: 400 U, UNK
  4. FISH OIL [Concomitant]
  5. DIMETHYL FUMARATE [Concomitant]
     Dosage: 240 MG, UNK
  6. SACCHAROMYCES BOULARDII [Concomitant]
     Indication: HYPERSENSITIVITY
     Dosage: 25 MG, UNK

REACTIONS (2)
  - Injection site scar [Unknown]
  - Injection site bruising [Unknown]
